FAERS Safety Report 11861816 (Version 1)
Quarter: 2015Q4

REPORT INFORMATION
  Report Type: Report from Study
  Country: JP (occurrence: JP)
  Receive Date: 20151222
  Receipt Date: 20151222
  Transmission Date: 20160305
  Serious: Yes (Death, Life-Threatening, Hospitalization)
  Sender: FDA-Public Use
  Company Number: JP-CELGENE-087-21660-13073644

PATIENT
  Age: 72 Year
  Sex: Male
  Weight: 54 kg

DRUGS (23)
  1. CELECOX [Concomitant]
     Active Substance: CELECOXIB
     Indication: PYREXIA
     Route: 048
     Dates: start: 20120718
  2. METHYCOBAL [Concomitant]
     Active Substance: METHYLCOBALAMIN
     Indication: PERIPHERAL SENSORY NEUROPATHY
     Dosage: 10 MILLIGRAM
     Route: 048
     Dates: start: 20130604
  3. HANGESHASHINTO [Concomitant]
     Active Substance: HERBALS
     Indication: MUCOSAL INFLAMMATION
     Route: 048
     Dates: start: 20130604
  4. NEUTROGIN [Concomitant]
     Active Substance: LENOGRASTIM
     Indication: PRODUCT USED FOR UNKNOWN INDICATION
     Route: 065
     Dates: start: 20130713
  5. PACKED RED CELLS [Concomitant]
     Indication: PRODUCT USED FOR UNKNOWN INDICATION
     Dosage: 2 UNITS
     Route: 041
     Dates: start: 20130713, end: 20130713
  6. RYTHMODAN [Concomitant]
     Active Substance: DISOPYRAMIDE
     Indication: PRODUCT USED FOR UNKNOWN INDICATION
     Route: 041
     Dates: start: 20130716
  7. INOVAN [Concomitant]
     Active Substance: DOPAMINE HYDROCHLORIDE
     Indication: PRODUCT USED FOR UNKNOWN INDICATION
     Route: 065
     Dates: start: 20130716
  8. HIRUDOID [Concomitant]
     Active Substance: GLYCOSAMINOGLYCANS
     Indication: ONYCHOMADESIS
     Route: 048
     Dates: start: 20120724
  9. PACKED RED CELLS [Concomitant]
     Dosage: 2 UNITS
     Route: 041
     Dates: start: 20130716, end: 20130716
  10. VASOLAN [Concomitant]
     Active Substance: VERAPAMIL HYDROCHLORIDE
     Indication: PRODUCT USED FOR UNKNOWN INDICATION
     Route: 041
     Dates: start: 20130716
  11. ADRENALINE [Concomitant]
     Active Substance: EPINEPHRINE
     Indication: PRODUCT USED FOR UNKNOWN INDICATION
     Route: 041
     Dates: start: 20130716
  12. NONTHRON [Concomitant]
     Indication: PRODUCT USED FOR UNKNOWN INDICATION
     Dosage: 1500 UNITS
     Route: 041
     Dates: start: 20130716
  13. NOREPINEPHRINE [Concomitant]
     Active Substance: NOREPINEPHRINE\NOREPINEPHRINE BITARTRATE
     Indication: PRODUCT USED FOR UNKNOWN INDICATION
     Route: 041
     Dates: start: 20130716
  14. ATROPINE. [Concomitant]
     Active Substance: ATROPINE
     Indication: PRODUCT USED FOR UNKNOWN INDICATION
     Route: 041
     Dates: start: 20130716
  15. ABRAXANE [Suspect]
     Active Substance: PACLITAXEL
     Indication: METASTATIC GASTRIC CANCER
     Route: 041
     Dates: start: 20130523, end: 20130709
  16. BIO-THREE [Concomitant]
     Active Substance: HERBALS
     Indication: DIARRHOEA
     Route: 048
     Dates: start: 20120814
  17. PARIET [Concomitant]
     Active Substance: RABEPRAZOLE SODIUM
     Indication: PRODUCT USED FOR UNKNOWN INDICATION
     Route: 048
     Dates: start: 20120814
  18. LASIX [Concomitant]
     Active Substance: FUROSEMIDE
     Indication: OEDEMA PERIPHERAL
     Dosage: 3 TABLET
     Route: 048
     Dates: start: 20121106
  19. PACKED RED CELLS [Concomitant]
     Dosage: 2 UNITS
     Route: 041
     Dates: start: 20130717, end: 20130717
  20. ONOACT [Concomitant]
     Active Substance: LANDIOLOL HYDROCHLORIDE
     Indication: PRODUCT USED FOR UNKNOWN INDICATION
     Route: 041
     Dates: start: 20130716
  21. KENALOG [Concomitant]
     Active Substance: TRIAMCINOLONE ACETONIDE
     Indication: MUCOSAL INFLAMMATION
     Dosage: 200 MILLIGRAM
     Route: 048
     Dates: start: 20120803
  22. ALBUMIN [Concomitant]
     Active Substance: ALBUMIN (HUMAN)
     Indication: PRODUCT USED FOR UNKNOWN INDICATION
     Route: 041
     Dates: start: 20130716
  23. PACKED RED CELLS [Concomitant]
     Dosage: 2 UNITS
     Route: 041
     Dates: start: 20130718, end: 20130718

REACTIONS (2)
  - Pneumonia [Fatal]
  - Febrile neutropenia [Fatal]

NARRATIVE: CASE EVENT DATE: 20130712
